FAERS Safety Report 9522250 (Version 1)
Quarter: 2013Q3

REPORT INFORMATION
  Report Type: Spontaneous
  Country: US (occurrence: US)
  Receive Date: 20130913
  Receipt Date: 20130913
  Transmission Date: 20140515
  Serious: No
  Sender: FDA-Public Use
  Company Number: US-PFIZER INC-2013263894

PATIENT
  Age: 55 Year
  Sex: Male
  Weight: 122 kg

DRUGS (1)
  1. INLYTA [Suspect]
     Indication: RENAL CANCER
     Dosage: 5 MG, 2X/DAY
     Dates: start: 20130827

REACTIONS (2)
  - Stomatitis [Not Recovered/Not Resolved]
  - Hypertension [Unknown]
